FAERS Safety Report 8840089 (Version 1)
Quarter: 2012Q4

REPORT INFORMATION
  Report Type: 
  Country: TT (occurrence: TT)
  Receive Date: 20121015
  Receipt Date: 20121015
  Transmission Date: 20130627
  Serious: Yes (Death)
  Sender: FDA-Public Use
  Company Number: TT-ROCHE-1088632

PATIENT
  Age: 40 Year
  Sex: Female

DRUGS (1)
  1. CAPECITABINE [Suspect]
     Indication: BREAST CANCER METASTATIC
     Route: 065

REACTIONS (5)
  - Rash [Recovering/Resolving]
  - Pruritus [Recovering/Resolving]
  - Ill-defined disorder [Unknown]
  - Vitiligo [Unknown]
  - Disease progression [Fatal]
